FAERS Safety Report 4862844-1 (Version None)
Quarter: 2005Q4

REPORT INFORMATION
  Report Type: 
  Country: None (occurrence: None)
  Receive Date: 20051221
  Receipt Date: 20051114
  Transmission Date: 20060501
  Serious: Yes (Other)
  Sender: FDA-Public Use
  Company Number: 2005AP06236

PATIENT
  Age: 3926 Day
  Sex: Female
  Weight: 39 kg

DRUGS (5)
  1. PULMICORT [Suspect]
     Indication: ASTHMA
     Route: 055
     Dates: start: 20050831, end: 20051110
  2. PULMICORT [Suspect]
     Route: 055
     Dates: start: 20051111, end: 20051121
  3. THEO-DUR [Concomitant]
     Indication: ASTHMA
     Route: 048
     Dates: start: 20050831
  4. PRIMPERAN INJ [Concomitant]
     Indication: PROPHYLAXIS
     Route: 048
     Dates: start: 20050831
  5. HOKUNALIN [Concomitant]
     Indication: ASTHMA
     Dates: start: 20050831

REACTIONS (1)
  - ACNE [None]
